FAERS Safety Report 17420300 (Version 1)
Quarter: 2020Q1

REPORT INFORMATION
  Report Type: Spontaneous
  Country: IL (occurrence: IL)
  Receive Date: 20200214
  Receipt Date: 20200214
  Transmission Date: 20200409
  Serious: Yes (Death, Other)
  Sender: FDA-Public Use
  Company Number: IL-PFIZER INC-2019465411

PATIENT
  Age: 63 Year
  Sex: Male

DRUGS (2)
  1. CRESEMBA [Suspect]
     Active Substance: ISAVUCONAZONIUM SULFATE
     Dosage: UNK
  2. BESPONSA [Suspect]
     Active Substance: INOTUZUMAB OZOGAMICIN
     Dosage: UNK

REACTIONS (7)
  - Death [Fatal]
  - Headache [Unknown]
  - Constipation [Unknown]
  - Ascites [Unknown]
  - Venoocclusive liver disease [Unknown]
  - Sepsis [Unknown]
  - Transaminases increased [Unknown]
